FAERS Safety Report 6210632-6 (Version None)
Quarter: 2009Q2

REPORT INFORMATION
  Report Type: 
  Country: None (occurrence: None)
  Receive Date: 20090601
  Receipt Date: 20090520
  Transmission Date: 20091009
  Serious: Yes (Death)
  Sender: FDA-Public Use
  Company Number: JP-PFIZER INC-2009217540

PATIENT
  Age: 64 Year

DRUGS (10)
  1. VORICONAZOLE [Suspect]
     Indication: BRONCHOPULMONARY ASPERGILLOSIS
     Dosage: UNK
     Route: 017
     Dates: start: 20080112, end: 20080112
  2. VORICONAZOLE [Suspect]
     Dosage: 3 MG/KG, 2X/DAY
     Route: 042
     Dates: start: 20080113, end: 20080125
  3. VORICONAZOLE [Suspect]
     Dosage: 150 MG, 2X/DAY
     Route: 048
     Dates: start: 20080126, end: 20080222
  4. VORICONAZOLE [Suspect]
     Dosage: 300 MG, 2X/DAY
     Route: 048
     Dates: start: 20080223
  5. MODACIN [Concomitant]
     Indication: INFECTION
     Dosage: UNK
     Route: 042
     Dates: start: 20080205, end: 20080219
  6. CLARITHROMYCIN [Concomitant]
     Indication: INFECTION
     Dosage: UNK
     Route: 048
     Dates: start: 20080304, end: 20080317
  7. AVELOX [Concomitant]
     Indication: INFECTION
     Dosage: UNK
     Dates: start: 20080318, end: 20080324
  8. CRAVIT [Concomitant]
     Dosage: UNK
     Dates: start: 20080526, end: 20080608
  9. CRAVIT [Concomitant]
     Dosage: UNK
     Dates: start: 20081215, end: 20081219
  10. MAXIPIME [Concomitant]
     Dates: start: 20081223

REACTIONS (1)
  - INTERSTITIAL LUNG DISEASE [None]
